FAERS Safety Report 14773639 (Version 4)
Quarter: 2018Q4

REPORT INFORMATION
  Report Type: Spontaneous
  Country: DE (occurrence: DE)
  Receive Date: 20180418
  Receipt Date: 20181029
  Transmission Date: 20190204
  Serious: Yes (Other)
  Sender: FDA-Public Use
  Company Number: DE-MYLANLABS-2018M1025401

PATIENT
  Sex: Male

DRUGS (4)
  1. LEPONEX [Suspect]
     Active Substance: CLOZAPINE
     Dosage: UNK
  2. LEPONEX [Suspect]
     Active Substance: CLOZAPINE
     Dosage: 200 MG, UNK
     Dates: start: 2018
  3. LEPONEX [Suspect]
     Active Substance: CLOZAPINE
     Indication: PRODUCT USED FOR UNKNOWN INDICATION
     Dosage: UNK
  4. ZYPREXA [Interacting]
     Active Substance: OLANZAPINE
     Indication: PRODUCT USED FOR UNKNOWN INDICATION
     Dosage: UNK

REACTIONS (11)
  - Drug ineffective [Unknown]
  - Cough [Not Recovered/Not Resolved]
  - Back pain [Unknown]
  - Seasonal allergy [Not Recovered/Not Resolved]
  - Somnolence [Unknown]
  - Cardiac operation [Unknown]
  - Feeling abnormal [Not Recovered/Not Resolved]
  - Drug interaction [Unknown]
  - Nasopharyngitis [Not Recovered/Not Resolved]
  - Mental disorder [Unknown]
  - Spinal cord compression [Unknown]

NARRATIVE: CASE EVENT DATE: 2018
